FAERS Safety Report 10589946 (Version 1)
Quarter: 2014Q4

REPORT INFORMATION
  Report Type: Spontaneous
  Country: US (occurrence: None)
  Receive Date: 20141117
  Receipt Date: 20141117
  Transmission Date: 20150529
  Serious: No
  Sender: FDA-Public Use
  Company Number: None

PATIENT
  Age: 60 Year
  Sex: Female
  Weight: 102.06 kg

DRUGS (1)
  1. HYDROCODONE ACETAMINOPHEN [Suspect]
     Active Substance: ACETAMINOPHEN\HYDROCODONE BITARTRATE
     Indication: PAIN
     Dosage: 1 OR 2 TABLETS
     Route: 048
     Dates: start: 20141112, end: 20141113

REACTIONS (4)
  - Swelling face [None]
  - Pruritus [None]
  - Swollen tongue [None]
  - Erythema [None]

NARRATIVE: CASE EVENT DATE: 20141114
